FAERS Safety Report 10938738 (Version 2)
Quarter: 2015Q2

REPORT INFORMATION
  Report Type: Spontaneous
  Country: US (occurrence: US)
  Receive Date: 20150321
  Receipt Date: 20150525
  Transmission Date: 20150821
  Serious: No
  Sender: FDA-Public Use
  Company Number: US-JNJFOC-20140100873

PATIENT
  Sex: Female
  Weight: 63.5 kg

DRUGS (1)
  1. STELARA [Suspect]
     Active Substance: USTEKINUMAB
     Indication: PITYRIASIS RUBRA PILARIS
     Route: 058
     Dates: start: 2010

REACTIONS (4)
  - Exposure during pregnancy [Not Recovered/Not Resolved]
  - Pityriasis rubra pilaris [Recovered/Resolved]
  - Product use issue [Recovered/Resolved]
  - Dry skin [Not Recovered/Not Resolved]
